FAERS Safety Report 7739344-4 (Version None)
Quarter: 2011Q3

REPORT INFORMATION
  Report Type: 
  Country: None (occurrence: None)
  Receive Date: 20110909
  Receipt Date: 20110830
  Transmission Date: 20111222
  Serious: Yes (Other)
  Sender: FDA-Public Use
  Company Number: BR-US-EMD SERONO, INC.-7080481

PATIENT
  Sex: Female

DRUGS (1)
  1. REBIF [Suspect]
     Indication: RELAPSING-REMITTING MULTIPLE SCLEROSIS
     Dates: start: 20061101, end: 20110224

REACTIONS (4)
  - MULTIPLE SCLEROSIS RELAPSE [None]
  - MATERNAL EXPOSURE DURING PREGNANCY [None]
  - URINARY INCONTINENCE [None]
  - ECTOPIC PREGNANCY [None]
